FAERS Safety Report 4969431-5 (Version None)
Quarter: 2006Q2

REPORT INFORMATION
  Report Type: 
  Country: None (occurrence: None)
  Receive Date: 20060406
  Receipt Date: 20060403
  Transmission Date: 20061013
  Serious: Yes (Hospitalization, Other)
  Sender: FDA-Public Use
  Company Number: 200513007BWH

PATIENT
  Age: 41 Year
  Sex: Female

DRUGS (1)
  1. CIPROFLOXACIN HCL [Suspect]
     Dosage: 500 MG, ORAL
     Route: 048

REACTIONS (3)
  - DYSPNOEA [None]
  - RASH [None]
  - RHABDOMYOLYSIS [None]
